FAERS Safety Report 25203112 (Version 1)
Quarter: 2025Q2

REPORT INFORMATION
  Report Type: Spontaneous
  Country: US (occurrence: US)
  Receive Date: 20250416
  Receipt Date: 20250416
  Transmission Date: 20250716
  Serious: No
  Sender: COSETTE PHARMACEUTICALS INC
  Company Number: US-COSETTE-CP2025US000366

PATIENT
  Age: 37 Year
  Sex: Female
  Weight: 70.3 kg

DRUGS (1)
  1. VYLEESI [Suspect]
     Active Substance: BREMELANOTIDE ACETATE
     Indication: Libido decreased
     Route: 058
     Dates: start: 20250401, end: 20250401

REACTIONS (3)
  - Nausea [Recovered/Resolved]
  - Injection site pruritus [Recovered/Resolved]
  - Product use in unapproved indication [Unknown]

NARRATIVE: CASE EVENT DATE: 20250401
